FAERS Safety Report 10661922 (Version 4)
Quarter: 2015Q2

REPORT INFORMATION
  Report Type: Spontaneous
  Country: US (occurrence: US)
  Receive Date: 20141218
  Receipt Date: 20150520
  Transmission Date: 20150821
  Serious: No
  Sender: FDA-Public Use
  Company Number: US-009507513-1110USA03476

PATIENT
  Sex: Male
  Weight: 73.16 kg

DRUGS (1)
  1. PROPECIA [Suspect]
     Active Substance: FINASTERIDE
     Indication: ANDROGENETIC ALOPECIA
     Dosage: 1 MG, QD
     Route: 048
     Dates: start: 20060915, end: 20070601

REACTIONS (27)
  - Hypothalamic pituitary adrenal axis suppression [Unknown]
  - Sexual dysfunction [Unknown]
  - Libido decreased [Unknown]
  - Fatigue [Unknown]
  - Headache [Unknown]
  - Androgen deficiency [Unknown]
  - Erectile dysfunction [Unknown]
  - Hypogonadism [Unknown]
  - Skin disorder [Unknown]
  - Cognitive disorder [Unknown]
  - Leukopenia [Unknown]
  - Dry eye [Unknown]
  - Seborrhoeic dermatitis [Unknown]
  - Drug hypersensitivity [Unknown]
  - Thrombocytopenia [Unknown]
  - Adverse event [Unknown]
  - Depression [Unknown]
  - Testicular pain [Unknown]
  - Adrenal disorder [Unknown]
  - Nausea [Unknown]
  - Dysuria [Unknown]
  - Psoriasis [Unknown]
  - Ejaculation disorder [Unknown]
  - Ejaculation failure [Unknown]
  - Anxiety [Unknown]
  - Presyncope [Unknown]
  - Neck pain [Unknown]

NARRATIVE: CASE EVENT DATE: 200703
